FAERS Safety Report 8475023-6 (Version None)
Quarter: 2012Q2

REPORT INFORMATION
  Report Type: 
  Country: None (occurrence: None)
  Receive Date: 20120628
  Receipt Date: 20120625
  Transmission Date: 20120825
  Serious: Yes (Hospitalization)
  Sender: FDA-Public Use
  Company Number: US-BAYER-2011-063315

PATIENT
  Age: 28 Year
  Sex: Female
  Weight: 125.17 kg

DRUGS (15)
  1. CHLORPHENIRAMINE W/HYDROCODONE [Concomitant]
     Indication: BRONCHITIS
     Dosage: UNK
     Route: 048
     Dates: start: 20090829, end: 20090908
  2. ACETAMINOPHEN [Concomitant]
     Indication: PAIN MANAGEMENT
     Dosage: UNK
     Dates: start: 20090829
  3. ASPIRIN [Concomitant]
     Indication: PAIN IN EXTREMITY
  4. XOPENEX [Concomitant]
     Dosage: UNK
     Dates: start: 20090829
  5. PROVENTIL [Concomitant]
     Indication: DYSPNOEA
  6. DROSPIRENONE AND ETHINYL ESTRADIOL [Suspect]
     Indication: UTERINE LEIOMYOMA
  7. OTHER ANALGESICS AND ANTIPYRETICS [Concomitant]
     Dosage: UNK
     Dates: start: 20090720
  8. MULTI-VITAMIN [Concomitant]
     Dosage: UNK
     Dates: start: 20090819, end: 20090908
  9. METHYLPREDNISOLONE [Concomitant]
     Indication: BRONCHITIS
     Dosage: 4 MG, UNK
     Dates: start: 20090829, end: 20090908
  10. CHLORPHENIRAMINE W/HYDROCODONE [Concomitant]
     Indication: COUGH
  11. AZITHROMYCIN [Concomitant]
     Indication: BRONCHITIS
     Dosage: 250 MG, UNK
     Dates: start: 20090829, end: 20090908
  12. DROSPIRENONE AND ETHINYL ESTRADIOL [Suspect]
     Indication: PREMENSTRUAL SYNDROME
     Dosage: UNK
     Dates: start: 20090801, end: 20090901
  13. FLEXAMIN [Concomitant]
     Dosage: UNK
     Dates: start: 20090720
  14. NYQUIL [Concomitant]
     Dosage: UNK
     Dates: start: 20090829
  15. PROVENTIL [Concomitant]
     Indication: BRONCHITIS
     Dosage: UNK
     Dates: start: 20090829, end: 20090908

REACTIONS (4)
  - PULMONARY EMBOLISM [None]
  - THROMBOPHLEBITIS [None]
  - ANXIETY [None]
  - PAIN [None]
